FAERS Safety Report 15506070 (Version 1)
Quarter: 2018Q4

REPORT INFORMATION
  Report Type: Report from Study
  Country: CA (occurrence: CA)
  Receive Date: 20181016
  Receipt Date: 20181016
  Transmission Date: 20190205
  Serious: Yes (Other)
  Sender: FDA-Public Use
  Company Number: CA-MYLANLABS-2016080024

PATIENT
  Age: 14 Year
  Sex: Female

DRUGS (1)
  1. FELBAMATE. [Suspect]
     Active Substance: FELBAMATE
     Indication: EPILEPSY
     Dosage: 600 MG AM + 900 MG PM(1500 MG)
     Route: 048

REACTIONS (1)
  - Epilepsy [Not Recovered/Not Resolved]
